FAERS Safety Report 24769188 (Version 2)
Quarter: 2025Q1

REPORT INFORMATION
  Report Type: Spontaneous
  Country: FR (occurrence: FR)
  Receive Date: 20241224
  Receipt Date: 20250101
  Transmission Date: 20250409
  Serious: Yes (Hospitalization)
  Sender: BRISTOL-MYERS SQUIBB COMPANY
  Company Number: FR-BRISTOL-MYERS SQUIBB COMPANY-2024-197209

PATIENT
  Age: 55 Year
  Sex: Male

DRUGS (4)
  1. KENACORT [Suspect]
     Active Substance: TRIAMCINOLONE
     Indication: Osteoarthritis
     Dates: start: 20241114, end: 20241114
  2. LORAZEPAM [Concomitant]
     Active Substance: LORAZEPAM
     Indication: Sleep disorder
  3. TRAMADOL [Concomitant]
     Active Substance: TRAMADOL
     Indication: Product used for unknown indication
     Dosage: 3 X 50 MG - ONCE MORNING, NOON AND EVENING - 50MG IN THE MORNING - 50MG IN THE EVENING AND 50MG AT N
  4. DOLIPRANE [Concomitant]
     Active Substance: ACETAMINOPHEN
     Indication: Product used for unknown indication
     Dosage: 2G PER DAY - 1G MORNING AND 1G IN THE EVENING

REACTIONS (7)
  - Vision blurred [Not Recovered/Not Resolved]
  - Dizziness [Unknown]
  - Hypertension [Not Recovered/Not Resolved]
  - Hot flush [Unknown]
  - Weight decreased [Unknown]
  - Dermatitis allergic [Not Recovered/Not Resolved]
  - Off label use [Unknown]

NARRATIVE: CASE EVENT DATE: 20240101
